FAERS Safety Report 23088520 (Version 1)
Quarter: 2023Q4

REPORT INFORMATION
  Report Type: Spontaneous
  Country: US (occurrence: US)
  Receive Date: 20231020
  Receipt Date: 20231020
  Transmission Date: 20240109
  Serious: Yes (Hospitalization, Other)
  Sender: FDA-Public Use
  Company Number: US-APOTEX-2023AP015561

PATIENT
  Age: 52 Year
  Sex: Female

DRUGS (4)
  1. LETROZOLE [Suspect]
     Active Substance: LETROZOLE
     Indication: Metastases to lung
     Dosage: UNK
     Route: 065
     Dates: start: 2015
  2. TAMOXIFEN [Suspect]
     Active Substance: TAMOXIFEN
     Indication: Malignant neoplasm progression
     Dosage: UNK
     Route: 065
     Dates: start: 2022
  3. PALBOCICLIB [Suspect]
     Active Substance: PALBOCICLIB
     Indication: Metastases to lung
     Dosage: UNK
     Route: 065
     Dates: start: 2015
  4. ALPELISIB [Suspect]
     Active Substance: ALPELISIB
     Indication: Malignant neoplasm progression
     Dosage: UNK
     Route: 065
     Dates: start: 2022

REACTIONS (2)
  - Diabetic ketoacidosis [Unknown]
  - Type 2 diabetes mellitus [Unknown]
